FAERS Safety Report 5499126-3 (Version None)
Quarter: 2007Q4

REPORT INFORMATION
  Report Type: 
  Country: None (occurrence: None)
  Receive Date: 20071026
  Receipt Date: 20070629
  Transmission Date: 20080405
  Serious: No
  Sender: FDA-Public Use
  Company Number: A0654261A

PATIENT
  Age: 86 Year
  Sex: Female
  Weight: 55.9 kg

DRUGS (4)
  1. ADVAIR DISKUS 100/50 [Suspect]
     Indication: CHRONIC OBSTRUCTIVE PULMONARY DISEASE
     Dosage: 1PUFF TWICE PER DAY
     Route: 055
     Dates: start: 20070401, end: 20070605
  2. IBUPROFEN [Concomitant]
  3. LEVOXYL [Concomitant]
  4. NORVASC [Concomitant]

REACTIONS (4)
  - ANXIETY [None]
  - BLOOD PRESSURE INCREASED [None]
  - HEADACHE [None]
  - MUSCULOSKELETAL DISCOMFORT [None]
